FAERS Safety Report 8192115-X (Version None)
Quarter: 2012Q1

REPORT INFORMATION
  Report Type: 
  Country: None (occurrence: None)
  Receive Date: 20120307
  Receipt Date: 20120301
  Transmission Date: 20120608
  Serious: Yes (Death, Other)
  Sender: FDA-Public Use
  Company Number: US-PFIZER INC-2012056494

PATIENT
  Sex: Male

DRUGS (1)
  1. VFEND [Suspect]
     Indication: LEUKAEMIA
     Dosage: 150 MG, 2X/DAY
     Dates: start: 20110929

REACTIONS (3)
  - PNEUMONIA [None]
  - DISEASE PROGRESSION [None]
  - LEUKAEMIA [None]
